FAERS Safety Report 20347582 (Version 2)
Quarter: 2022Q1

REPORT INFORMATION
  Report Type: Spontaneous
  Country: DE (occurrence: DE)
  Receive Date: 20220118
  Receipt Date: 20220210
  Transmission Date: 20220423
  Serious: Yes (Life-Threatening, Hospitalization, Other)
  Sender: FDA-Public Use
  Company Number: DE-GE HEALTHCARE-2022CSU000344

PATIENT
  Age: 13 Year
  Sex: Male
  Weight: 50 kg

DRUGS (4)
  1. CLARISCAN [Suspect]
     Active Substance: GADOTERATE MEGLUMINE
     Indication: Magnetic resonance imaging
     Dosage: 10 ML, SINGLE
     Route: 042
     Dates: start: 20220112, end: 20220112
  2. CLARISCAN [Suspect]
     Active Substance: GADOTERATE MEGLUMINE
     Indication: Synovitis
  3. CLARISCAN [Suspect]
     Active Substance: GADOTERATE MEGLUMINE
     Indication: Pachydermodactyly
  4. METHYLPHENIDATE [Concomitant]
     Active Substance: METHYLPHENIDATE
     Indication: Attention deficit hyperactivity disorder
     Route: 048

REACTIONS (9)
  - Hypoaesthesia [Unknown]
  - Dyspnoea [Unknown]
  - Erythema [Unknown]
  - Pharyngeal swelling [Unknown]
  - Swollen tongue [Unknown]
  - Lip swelling [Unknown]
  - Urticaria [Unknown]
  - Feeling hot [Unknown]
  - Nausea [Unknown]

NARRATIVE: CASE EVENT DATE: 20220112
